FAERS Safety Report 9730916 (Version 1)
Quarter: 2013Q4

REPORT INFORMATION
  Report Type: Spontaneous
  Country: JP (occurrence: JP)
  Receive Date: 20131205
  Receipt Date: 20131205
  Transmission Date: 20140711
  Serious: Yes (Other)
  Sender: FDA-Public Use
  Company Number: JP-B.I. PHARMACEUTICALS,INC./RIDGEFIELD-2013-BI-40507YA

PATIENT
  Age: 70 Year
  Sex: Male

DRUGS (9)
  1. TAMSULOSIN [Suspect]
     Dosage: 0.2 MG
     Route: 048
     Dates: start: 201307
  2. DIOVAN [Concomitant]
     Route: 065
  3. CALBLOCK [Concomitant]
     Route: 065
  4. LIPIDIL [Concomitant]
     Route: 065
  5. CRESTOR [Concomitant]
     Route: 065
  6. NEXIUM [Concomitant]
     Route: 065
  7. PROMAC [Concomitant]
     Dosage: FORMULATION: PER ORAL NOS
     Route: 065
  8. METHYLCOBAL [Concomitant]
     Route: 065
  9. MEILAX [Concomitant]
     Dosage: FORMULATION: PER ORAL NOS
     Route: 065

REACTIONS (3)
  - Dizziness [Unknown]
  - Tinnitus [Unknown]
  - Hypoacusis [Unknown]
